FAERS Safety Report 11346783 (Version 1)
Quarter: 2015Q3

REPORT INFORMATION
  Report Type: Spontaneous
  Country: PL (occurrence: PL)
  Receive Date: 20150806
  Receipt Date: 20150806
  Transmission Date: 20151125
  Serious: Yes (Life-Threatening)
  Sender: FDA-Public Use
  Company Number: PL-ASTRAZENECA-2015SE75403

PATIENT
  Age: 8814 Day
  Sex: Male
  Weight: 43 kg

DRUGS (7)
  1. TRILAC [Concomitant]
     Indication: CYSTIC FIBROSIS
     Route: 048
     Dates: start: 20140331
  2. COLISTIN [Concomitant]
     Active Substance: COLISTIN
     Indication: CYSTIC FIBROSIS
     Route: 042
     Dates: start: 20140331
  3. KREON 25000 [Concomitant]
     Active Substance: PANCRELIPASE
     Indication: CYSTIC FIBROSIS
     Dosage: 10-12 CAPSULES, DAILY
     Route: 048
     Dates: start: 20140331
  4. URSOFALK [Concomitant]
     Active Substance: URSODIOL
     Indication: CYSTIC FIBROSIS
     Route: 048
     Dates: start: 20140331
  5. MEROPENEM. [Suspect]
     Active Substance: MEROPENEM
     Indication: CYSTIC FIBROSIS
     Route: 042
     Dates: start: 20140331, end: 20140403
  6. ACC 600 [Concomitant]
     Indication: CYSTIC FIBROSIS
     Route: 048
     Dates: start: 20140331
  7. CONTROLOC [Concomitant]
     Active Substance: PANTOPRAZOLE SODIUM
     Indication: CYSTIC FIBROSIS
     Dates: start: 20140302

REACTIONS (5)
  - Cyanosis [Recovered/Resolved]
  - Hypotension [Recovered/Resolved]
  - Hypersensitivity [Unknown]
  - Loss of consciousness [Recovered/Resolved]
  - Dyspnoea [Recovered/Resolved with Sequelae]

NARRATIVE: CASE EVENT DATE: 20140403
